FAERS Safety Report 4744681-1 (Version None)
Quarter: 2005Q3

REPORT INFORMATION
  Report Type: 
  Country: None (occurrence: None)
  Receive Date: 20050815
  Receipt Date: 20050804
  Transmission Date: 20060218
  Serious: Yes (Other)
  Sender: FDA-Public Use
  Company Number: US-JNJFOC-20050405030

PATIENT
  Sex: Female
  Weight: 94.8 kg

DRUGS (4)
  1. REMICADE [Suspect]
     Dosage: 5 VIALS
     Route: 042
  2. REMICADE [Suspect]
     Indication: RHEUMATOID ARTHRITIS
     Route: 042
  3. PREDNISONE [Concomitant]
     Indication: RHEUMATOID ARTHRITIS
  4. METHOTREXATE [Concomitant]
     Indication: RHEUMATOID ARTHRITIS

REACTIONS (3)
  - HEADACHE [None]
  - SINUS DISORDER [None]
  - TENDON RUPTURE [None]
